FAERS Safety Report 6662071-1 (Version None)
Quarter: 2010Q1

REPORT INFORMATION
  Report Type: 
  Country: None (occurrence: None)
  Receive Date: 20100331
  Receipt Date: 20100322
  Transmission Date: 20100710
  Serious: Yes (Other)
  Sender: FDA-Public Use
  Company Number: DE-PFIZER INC-2010000179

PATIENT
  Age: 78 Year
  Sex: Female
  Weight: 70 kg

DRUGS (16)
  1. AMPICILLIN AND SULBACTAM [Suspect]
     Indication: PNEUMONIA
     Dosage: 2 G, 2X/DAY
     Route: 042
     Dates: start: 20090612, end: 20090615
  2. TYGACIL [Suspect]
     Dosage: UNK
     Dates: start: 20090615, end: 20090618
  3. FRAGMIN [Concomitant]
  4. PLAVIX [Concomitant]
  5. ASPIRIN [Concomitant]
  6. TORSEMIDE [Concomitant]
  7. ATACAND [Concomitant]
  8. PENTAERYTHRITOL TETRANITRATE [Concomitant]
  9. NEBILET [Concomitant]
  10. ACTRAPID [Concomitant]
  11. PROTAPHAN [Concomitant]
  12. VIGANTOLETTEN ^MERCK^ [Concomitant]
  13. RENAVIT [Concomitant]
  14. PANTOPRAZOLE SODIUM [Concomitant]
  15. PARACETAMOL [Concomitant]
  16. CALCIUM ACETATE [Concomitant]

REACTIONS (3)
  - ALANINE AMINOTRANSFERASE INCREASED [None]
  - C-REACTIVE PROTEIN INCREASED [None]
  - DRUG INEFFECTIVE [None]
